FAERS Safety Report 18780901 (Version 1)
Quarter: 2021Q1

REPORT INFORMATION
  Report Type: Spontaneous
  Country: US (occurrence: US)
  Receive Date: 20210123
  Receipt Date: 20210123
  Transmission Date: 20210419
  Serious: No
  Sender: FDA-Public Use
  Company Number: None

PATIENT
  Age: 73 Year
  Sex: Male
  Weight: 71.55 kg

DRUGS (13)
  1. ASCORBIC ACID 500MG [Concomitant]
  2. BRAFTOVI [Suspect]
     Active Substance: ENCORAFENIB
     Indication: MALIGNANT MELANOMA
     Route: 048
     Dates: start: 20200602
  3. METOPROLOL TARTRATE. [Concomitant]
     Active Substance: METOPROLOL TARTRATE
  4. LIPITOR [Concomitant]
     Active Substance: ATORVASTATIN CALCIUM
  5. LISINOPRIL. [Concomitant]
     Active Substance: LISINOPRIL
  6. MULTIVITAMIN [Concomitant]
     Active Substance: VITAMINS
  7. CRANBERRY 250MG [Concomitant]
  8. FISH OIL [Concomitant]
     Active Substance: FISH OIL
  9. OMEPRAZOLE 40MG [Concomitant]
     Active Substance: OMEPRAZOLE
  10. ASPIRIN 81MG [Concomitant]
     Active Substance: ASPIRIN
  11. IBUPROFEN. [Concomitant]
     Active Substance: IBUPROFEN
  12. TRIAMCINOLONE [Concomitant]
     Active Substance: TRIAMCINOLONE
  13. MEKTOVI [Suspect]
     Active Substance: BINIMETINIB
     Indication: MALIGNANT MELANOMA
     Route: 048
     Dates: start: 20200602

REACTIONS (2)
  - Skin swelling [None]
  - Pruritus [None]

NARRATIVE: CASE EVENT DATE: 20210123
